FAERS Safety Report 4336640-8 (Version None)
Quarter: 2004Q2

REPORT INFORMATION
  Report Type: 
  Country: None (occurrence: None)
  Receive Date: 20040412
  Receipt Date: 20040323
  Transmission Date: 20050107
  Serious: Yes (Death, Other)
  Sender: FDA-Public Use
  Company Number: GB-MERCK-0403USA02597

PATIENT
  Age: 39 Week
  Sex: Male

DRUGS (2)
  1. ALBENDAZOLE [Suspect]
     Indication: STRONGYLOIDIASIS
     Route: 065
  2. STROMECTOL [Suspect]
     Indication: STRONGYLOIDIASIS
     Route: 048

REACTIONS (5)
  - GASTRIC ULCER PERFORATION [None]
  - LYMPHOMA [None]
  - PNEUMONITIS [None]
  - STRONGYLOIDIASIS [None]
  - THERAPY NON-RESPONDER [None]
